FAERS Safety Report 18181949 (Version 1)
Quarter: 2020Q3

REPORT INFORMATION
  Report Type: Other
  Country: CN (occurrence: CN)
  Receive Date: 20200821
  Receipt Date: 20200821
  Transmission Date: 20201103
  Serious: Yes (Death)
  Sender: FDA-Public Use
  Company Number: CN-ROCHE-2664106

PATIENT

DRUGS (18)
  1. VINDESINE [Suspect]
     Active Substance: VINDESINE
     Indication: B-CELL LYMPHOMA
     Dosage: ON DAY 2
     Route: 065
  2. ETOPOSIDE. [Suspect]
     Active Substance: ETOPOSIDE
     Route: 065
  3. MESNA. [Concomitant]
     Active Substance: MESNA
  4. INTERLEUKIN?2 [Concomitant]
     Active Substance: ALDESLEUKIN
     Dosage: 0.5 MIU WAS ADOPTED AT A FREQUENCY OF 3 TIMES A WEEK FOR 6 MONTHS
     Route: 030
  5. MITOXANTRONE [Suspect]
     Active Substance: MITOXANTRONE HYDROCHLORIDE
     Indication: B-CELL LYMPHOMA
     Dosage: FOR 3 DAYS (PART OF R?MOED REGIMEN).
     Route: 065
  6. LOMUSTINE. [Concomitant]
     Active Substance: LOMUSTINE
  7. HEPARIN [Concomitant]
     Active Substance: HEPARIN SODIUM
  8. CYTARABINE. [Concomitant]
     Active Substance: CYTARABINE
  9. ALPROSTADIL. [Concomitant]
     Active Substance: ALPROSTADIL
  10. INTERLEUKIN?2 [Concomitant]
     Active Substance: ALDESLEUKIN
     Dosage: 1 MIU/D INTRAVENOUSLY AT A FREQUENCY OF 5 DAY A WEEK FOR 4 WEEKS
     Route: 042
  11. RITUXIMAB. [Suspect]
     Active Substance: RITUXIMAB
     Indication: B-CELL LYMPHOMA
     Dosage: ON DAY 1
     Route: 041
  12. EPIRUBICIN [Suspect]
     Active Substance: EPIRUBICIN
     Indication: B-CELL LYMPHOMA
     Dosage: ON DAY 2
     Route: 065
  13. ETOPOSIDE. [Suspect]
     Active Substance: ETOPOSIDE
     Indication: B-CELL LYMPHOMA
     Dosage: ON DAY 2?DAY 5
     Route: 065
  14. LEVOFLOXACIN. [Concomitant]
     Active Substance: LEVOFLOXACIN
  15. DEXAMETHASONE. [Suspect]
     Active Substance: DEXAMETHASONE
     Indication: B-CELL LYMPHOMA
     Dosage: ON DAY 2?DAY 6
     Route: 065
  16. DANSHEN [Concomitant]
     Active Substance: HERBALS
  17. DOXORUBICIN [Suspect]
     Active Substance: DOXORUBICIN
     Indication: B-CELL LYMPHOMA
     Dosage: ON DAY 2
     Route: 065
  18. CYCLOPHOSPHAMIDE. [Suspect]
     Active Substance: CYCLOPHOSPHAMIDE
     Indication: B-CELL LYMPHOMA
     Dosage: ON DAY 2
     Route: 065

REACTIONS (1)
  - Evans syndrome [Fatal]
